FAERS Safety Report 6473557-7 (Version None)
Quarter: 2009Q4

REPORT INFORMATION
  Report Type: 
  Country: None (occurrence: None)
  Receive Date: 20091204
  Receipt Date: 20090526
  Transmission Date: 20100525
  Serious: Yes (Life-Threatening)
  Sender: FDA-Public Use
  Company Number: US-ELI_LILLY_AND_COMPANY-US200810005402

PATIENT
  Sex: Male
  Weight: 114.74 kg

DRUGS (6)
  1. BYETTA [Suspect]
     Indication: TYPE 2 DIABETES MELLITUS
     Dosage: 5 UG, 2/D
     Route: 058
     Dates: start: 20080520, end: 20080706
  2. BYETTA [Suspect]
     Dosage: 10 UG, 2/D
     Route: 058
     Dates: start: 20080707, end: 20080902
  3. LOVASTATIN [Concomitant]
     Dosage: 40 MG, EACH EVENING
     Dates: start: 20080804
  4. LISINOPRIL [Concomitant]
     Dosage: 5 MG, DAILY (1/D)
     Dates: start: 20080423
  5. ASPIRIN [Concomitant]
     Dosage: 81 MG, DAILY (1/D)
     Dates: start: 20080111
  6. GLIMEPIRIDE [Concomitant]
     Dosage: 2 MG, DAILY (1/D)
     Dates: start: 20080423, end: 20080520

REACTIONS (1)
  - PANCREATITIS [None]
